FAERS Safety Report 23183523 (Version 2)
Quarter: 2024Q1

REPORT INFORMATION
  Report Type: Spontaneous
  Country: US (occurrence: US)
  Receive Date: 20231114
  Receipt Date: 20240109
  Transmission Date: 20240409
  Serious: No
  Sender: FDA-Public Use
  Company Number: US-LUNDBECK-DKLU3069140

PATIENT
  Age: 45 Year
  Sex: Female
  Weight: 61.2 kg

DRUGS (1)
  1. VYEPTI [Suspect]
     Active Substance: EPTINEZUMAB-JJMR
     Indication: Migraine prophylaxis
     Route: 041
     Dates: start: 20230710

REACTIONS (2)
  - Migraine [Recovering/Resolving]
  - Brain fog [Recovered/Resolved]

NARRATIVE: CASE EVENT DATE: 20230701
